FAERS Safety Report 17093828 (Version 3)
Quarter: 2020Q1

REPORT INFORMATION
  Report Type: Spontaneous
  Country: IT (occurrence: IT)
  Receive Date: 20191129
  Receipt Date: 20200115
  Transmission Date: 20200409
  Serious: Yes (Other)
  Sender: FDA-Public Use
  Company Number: PHHY2019IT222786

PATIENT
  Age: 45 Year
  Sex: Male

DRUGS (10)
  1. CISPLATIN. [Suspect]
     Active Substance: CISPLATIN
     Indication: PLASMA CELL MYELOMA
     Dosage: 15 MG/M2, QD
     Route: 065
  2. CYCLOPHOSPHAMIDE. [Suspect]
     Active Substance: CYCLOPHOSPHAMIDE
     Indication: PLASMA CELL MYELOMA
     Dosage: FOR 4 DAYS
     Route: 065
  3. DEXAMETHASONE SODIUM PHOSPHATE. [Suspect]
     Active Substance: DEXAMETHASONE SODIUM PHOSPHATE
     Indication: PLASMA CELL MYELOMA
     Dosage: ADMINISTERED ON DAYS 1-4
     Route: 042
  4. DEXAMETHASONE SODIUM PHOSPHATE. [Suspect]
     Active Substance: DEXAMETHASONE SODIUM PHOSPHATE
     Dosage: 40 MG, UNK
     Route: 048
  5. THALIDOMIDE [Suspect]
     Active Substance: THALIDOMIDE
     Indication: PLASMA CELL MYELOMA
     Dosage: ADMINISTERED ON DAYS 1-21 DAYS IN A 21-DAY CYCLE. RECEIVED 3 CYCLES.
     Route: 065
  6. CARFILZOMIB [Concomitant]
     Active Substance: CARFILZOMIB
     Indication: PLASMA CELL MYELOMA
     Dosage: ADMINISTERED ON DAYS 1, 2, 8, 9, 15 AND 16 IN A 28-DAY CYCLE.
     Route: 042
  7. ZOLEDRONIC ACID [Suspect]
     Active Substance: ZOLEDRONIC ACID
     Indication: PLASMA CELL MYELOMA
     Dosage: 1 MG/M2, QMO (RECEIVED 3 CYCLES)
     Route: 041
  8. LENALIDOMIDE [Concomitant]
     Active Substance: LENALIDOMIDE
     Indication: PLASMA CELL MYELOMA
     Dosage: ADMINISTERED ON DAYS 1-21 IN A 28-DAY CYCLE.
     Route: 048
  9. BORTEZOMIB. [Suspect]
     Active Substance: BORTEZOMIB
     Indication: PLASMA CELL MYELOMA
     Dosage: ADMINISTERED BIWEEKLY ON DAYS 1, 4, 8, 11 IN A 21-DAY CYCLE. RECEIVED 3 CYCLES.
     Route: 058
  10. ETOPOSIDE. [Suspect]
     Active Substance: ETOPOSIDE
     Indication: PLASMA CELL MYELOMA
     Dosage: CONTINUOUS INFUSION OVER 24 HOURS
     Route: 041

REACTIONS (4)
  - Neutropenia [Recovered/Resolved]
  - Treatment failure [Unknown]
  - Therapy partial responder [Unknown]
  - Thrombocytopenia [Recovered/Resolved]
